FAERS Safety Report 5923785-1 (Version None)
Quarter: 2008Q4

REPORT INFORMATION
  Report Type: 
  Country: None (occurrence: None)
  Receive Date: 20081020
  Receipt Date: 20081009
  Transmission Date: 20090506
  Serious: Yes (Hospitalization)
  Sender: FDA-Public Use
  Company Number: US-JNJFOC-20081003975

PATIENT
  Sex: Male
  Weight: 113.4 kg

DRUGS (2)
  1. DURAGESIC-100 [Suspect]
     Indication: PAIN MANAGEMENT
     Route: 062
  2. CARDURA [Concomitant]
     Indication: URINARY TRACT DISORDER
     Route: 048

REACTIONS (1)
  - TENDON OPERATION [None]
